FAERS Safety Report 6454386-7 (Version None)
Quarter: 2009Q4

REPORT INFORMATION
  Report Type: 
  Country: None (occurrence: None)
  Receive Date: 20091124
  Receipt Date: 20091110
  Transmission Date: 20100525
  Serious: Yes (Hospitalization, Other)
  Sender: FDA-Public Use
  Company Number: US-SANOFI-AVENTIS-2009SA002658

PATIENT
  Age: 68 Year
  Sex: Female

DRUGS (3)
  1. LANTUS [Suspect]
     Indication: TYPE 2 DIABETES MELLITUS
     Dosage: DOSE:60 UNIT(S)
     Route: 058
  2. SOLOSTAR [Suspect]
     Indication: TYPE 2 DIABETES MELLITUS
  3. NOVOLOG [Suspect]
     Route: 065

REACTIONS (5)
  - GLYCOSYLATED HAEMOGLOBIN INCREASED [None]
  - HOSPITALISATION [None]
  - HYPERGLYCAEMIA [None]
  - URINARY INCONTINENCE [None]
  - VISUAL IMPAIRMENT [None]
